FAERS Safety Report 5073557-8 (Version None)
Quarter: 2006Q3

REPORT INFORMATION
  Report Type: 
  Country: None (occurrence: None)
  Receive Date: 20060717
  Receipt Date: 20060106
  Transmission Date: 20061208
  Serious: No
  Sender: FDA-Public Use
  Company Number: 2006000062

PATIENT
  Age: 67 Year
  Sex: Female

DRUGS (1)
  1. TARCEVA [Suspect]
     Indication: LUNG NEOPLASM MALIGNANT
     Dosage: 150 MG (QD), ORAL
     Route: 048
     Dates: start: 20050802

REACTIONS (3)
  - MUSCLE SPASMS [None]
  - SKIN FISSURES [None]
  - SKIN HAEMORRHAGE [None]
